FAERS Safety Report 5287515-1 (Version None)
Quarter: 2007Q1

REPORT INFORMATION
  Report Type: 
  Country: None (occurrence: None)
  Receive Date: 20070116
  Receipt Date: 20061004
  Transmission Date: 20070707
  Serious: No
  Sender: FDA-Public Use
  Company Number: 2006SP003535

PATIENT
  Age: 56 Year
  Sex: Male
  Weight: 99.3377 kg

DRUGS (4)
  1. LUNESTA [Suspect]
     Indication: SLEEP DISORDER
     Dosage: 2 MG;ORAL
     Route: 048
     Dates: start: 20050101, end: 20050101
  2. PERCOCET [Concomitant]
  3. OXYCONTIN [Concomitant]
  4. MORPHINE [Concomitant]

REACTIONS (2)
  - DRUG INEFFECTIVE [None]
  - INITIAL INSOMNIA [None]
